FAERS Safety Report 25320452 (Version 1)
Quarter: 2025Q2

REPORT INFORMATION
  Report Type: Spontaneous
  Country: CN (occurrence: CN)
  Receive Date: 20250515
  Receipt Date: 20250515
  Transmission Date: 20250717
  Serious: Yes (Other)
  Sender: MEITHEAL PHARMACEUTICALS
  Company Number: CN-MEITHEAL-2025MPSPO00168

PATIENT
  Age: 7 Year
  Sex: Female

DRUGS (1)
  1. BUSULFAN [Suspect]
     Active Substance: BUSULFAN
     Indication: Leukodystrophy
     Route: 042
     Dates: start: 20240927, end: 20240930

REACTIONS (1)
  - Seizure [Recovered/Resolved]

NARRATIVE: CASE EVENT DATE: 20240929
